FAERS Safety Report 13906757 (Version 1)
Quarter: 2017Q3

REPORT INFORMATION
  Report Type: Report from Study
  Country: None (occurrence: BR)
  Receive Date: 20170825
  Receipt Date: 20170825
  Transmission Date: 20171127
  Serious: Yes (Death, Other)
  Sender: FDA-Public Use
  Company Number: BR-ABBVIE-17P-020-2081077-00

PATIENT
  Sex: Male
  Weight: 70 kg

DRUGS (2)
  1. VENETOCLAX. [Suspect]
     Active Substance: VENETOCLAX
     Route: 048
     Dates: end: 20170821
  2. VENETOCLAX. [Suspect]
     Active Substance: VENETOCLAX
     Indication: PLASMA CELL MYELOMA
     Route: 048
     Dates: start: 20170721

REACTIONS (6)
  - Febrile neutropenia [Unknown]
  - Pulmonary mass [Unknown]
  - Candida infection [Fatal]
  - Plasma cell myeloma [Unknown]
  - Multiple organ dysfunction syndrome [Unknown]
  - Aspergillus infection [Fatal]
